FAERS Safety Report 14067345 (Version 1)
Quarter: 2017Q4

REPORT INFORMATION
  Report Type: Spontaneous
  Country: US (occurrence: US)
  Receive Date: 20171010
  Receipt Date: 20171010
  Transmission Date: 20180321
  Serious: No
  Sender: FDA-Public Use
  Company Number: US-AMGEN-USASP2017150240

PATIENT
  Age: 43 Year
  Sex: Female

DRUGS (2)
  1. ENBREL [Suspect]
     Active Substance: ETANERCEPT
     Indication: ANKYLOSING SPONDYLITIS
  2. ENBREL [Suspect]
     Active Substance: ETANERCEPT
     Indication: RHEUMATOID ARTHRITIS
     Dosage: 50 MG, QWK
     Route: 065
     Dates: start: 201707

REACTIONS (8)
  - Oropharyngeal pain [Not Recovered/Not Resolved]
  - Pain [Not Recovered/Not Resolved]
  - Asthenia [Not Recovered/Not Resolved]
  - Headache [Not Recovered/Not Resolved]
  - Malaise [Not Recovered/Not Resolved]
  - Productive cough [Not Recovered/Not Resolved]
  - Pyrexia [Not Recovered/Not Resolved]
  - Sputum discoloured [Not Recovered/Not Resolved]

NARRATIVE: CASE EVENT DATE: 2017
